FAERS Safety Report 21083605 (Version 2)
Quarter: 2022Q3

REPORT INFORMATION
  Report Type: Spontaneous
  Country: AT (occurrence: AT)
  Receive Date: 20220714
  Receipt Date: 20220726
  Transmission Date: 20221027
  Serious: Yes (Other)
  Sender: FDA-Public Use
  Company Number: AT-PFIZER INC-PV202200004809

PATIENT
  Age: 38 Year
  Sex: Male
  Weight: 39 kg

DRUGS (13)
  1. LEVETIRACETAM [Suspect]
     Active Substance: LEVETIRACETAM
     Indication: Seizure
     Dosage: 1500 MG
  2. LEVETIRACETAM [Suspect]
     Active Substance: LEVETIRACETAM
     Indication: Status epilepticus
  3. LEVETIRACETAM [Suspect]
     Active Substance: LEVETIRACETAM
     Indication: Off label use
  4. VIMPAT [Suspect]
     Active Substance: LACOSAMIDE
     Indication: Status epilepticus
     Dosage: 150 MILLIGRAM (MINCED TABLET POWDER)
  5. VIMPAT [Suspect]
     Active Substance: LACOSAMIDE
     Indication: Off label use
  6. ETOMIDATE [Suspect]
     Active Substance: ETOMIDATE
     Indication: Status epilepticus
     Dosage: 12.5 MILLIGRAM
  7. ETOMIDATE [Suspect]
     Active Substance: ETOMIDATE
     Indication: Seizure
  8. MIDAZOLAM HYDROCHLORIDE [Suspect]
     Active Substance: MIDAZOLAM HYDROCHLORIDE
     Indication: Status epilepticus
     Dosage: 5 MG
  9. MIDAZOLAM HYDROCHLORIDE [Suspect]
     Active Substance: MIDAZOLAM HYDROCHLORIDE
     Indication: Seizure
  10. LORAZEPAM [Suspect]
     Active Substance: LORAZEPAM
     Indication: Status epilepticus
     Dosage: 4 MG
  11. LORAZEPAM [Suspect]
     Active Substance: LORAZEPAM
     Indication: Seizure
  12. DIAZEPAM [Suspect]
     Active Substance: DIAZEPAM
     Indication: Status epilepticus
     Dosage: 22.5 MG
  13. DIAZEPAM [Suspect]
     Active Substance: DIAZEPAM
     Indication: Seizure

REACTIONS (3)
  - Seizure [Recovered/Resolved]
  - Drug ineffective [Unknown]
  - Off label use [Unknown]
